FAERS Safety Report 4681344-5 (Version None)
Quarter: 2005Q2

REPORT INFORMATION
  Report Type: 
  Country: None (occurrence: None)
  Receive Date: 20050601
  Receipt Date: 20050524
  Transmission Date: 20051028
  Serious: Yes (Death)
  Sender: FDA-Public Use
  Company Number: US_2005-004900

PATIENT
  Age: 62 Year
  Sex: Male

DRUGS (16)
  1. BETASERON [Suspect]
     Indication: SECONDARY PROGRESSIVE MULTIPLE SCLEROSIS
     Dosage: 2.4 MIU, EVERY 2D, SUBCUTANEOUS
     Route: 058
     Dates: start: 19950425
  2. LAMISIL [Concomitant]
  3. LANOXIN [Concomitant]
  4. BACLOFEN [Concomitant]
  5. FLONASE (FLUITCASONE PROPIONATE) [Concomitant]
  6. SENOKOT  /USA/ (SENNA ALEXANDRINA) [Concomitant]
  7. SPIRONOLACTONE [Concomitant]
  8. PROZAC [Concomitant]
  9. HYDRALAZINE HCL [Concomitant]
  10. COUMADIN [Concomitant]
  11. VITAMIN B-12 [Concomitant]
  12. POTASSIUM CHLORIDE [Concomitant]
  13. PREVACID [Concomitant]
  14. TOPROL XL (METOPRLOL SUCCINATE) [Concomitant]
  15. LIPITOR /NET/ (ATORVASTATIN CALCIUM) [Concomitant]
  16. LASIX [Concomitant]

REACTIONS (4)
  - COLON CANCER METASTATIC [None]
  - METASTASES TO BLADDER [None]
  - METASTASES TO LIVER [None]
  - METASTASES TO PROSTATE [None]
